FAERS Safety Report 9379430 (Version 2)
Quarter: 2013Q3

REPORT INFORMATION
  Report Type: Spontaneous
  Country: US (occurrence: US)
  Receive Date: 20130702
  Receipt Date: 20130711
  Transmission Date: 20140515
  Serious: Yes (Other)
  Sender: FDA-Public Use
  Company Number: US-PFIZER INC-2013192059

PATIENT
  Age: 52 Year
  Sex: Female
  Weight: 124.3 kg

DRUGS (2)
  1. SKELAXIN [Suspect]
     Indication: BACK PAIN
     Dosage: 1600 MG (2 TABLETS OF 800MG), 2X/DAY
     Route: 048
     Dates: start: 201201
  2. GRALISE [Concomitant]
     Indication: PAIN
     Dosage: UNK

REACTIONS (13)
  - Inappropriate schedule of drug administration [Unknown]
  - Synovial cyst [Unknown]
  - Nerve compression [Unknown]
  - Peripheral nerve injury [Unknown]
  - Muscle spasms [Unknown]
  - Pain [Unknown]
  - Hypoaesthesia [Unknown]
  - Muscular weakness [Unknown]
  - Pain in extremity [Unknown]
  - Arthralgia [Unknown]
  - Back disorder [Unknown]
  - Muscle tightness [Unknown]
  - Weight increased [Unknown]
